FAERS Safety Report 8999539 (Version 4)
Quarter: 2014Q1

REPORT INFORMATION
  Report Type: Spontaneous
  Country: JP (occurrence: JP)
  Receive Date: 20130103
  Receipt Date: 20140130
  Transmission Date: 20141002
  Serious: Yes (Hospitalization)
  Sender: FDA-Public Use
  Company Number: JP-JNJFOC-20121212562

PATIENT
  Age: 47 Year
  Sex: Female
  Weight: 54 kg

DRUGS (5)
  1. REMICADE [Suspect]
     Indication: RHEUMATOID ARTHRITIS
     Route: 042
     Dates: start: 200310
  2. METHOTREXATE [Suspect]
     Indication: RHEUMATOID ARTHRITIS
     Route: 048
     Dates: start: 2003
  3. PREDNISOLONE [Suspect]
     Indication: RHEUMATOID ARTHRITIS
     Route: 065
     Dates: start: 2003
  4. UNSPECIFIED [Suspect]
     Indication: RHEUMATOID ARTHRITIS
     Route: 065
     Dates: start: 2003
  5. UNSPECIFIED [Suspect]
     Indication: RHEUMATOID ARTHRITIS
     Route: 065
     Dates: start: 2003

REACTIONS (6)
  - Interstitial lung disease [Recovering/Resolving]
  - Polymyositis [Recovering/Resolving]
  - Antisynthetase syndrome [Unknown]
  - Hepatic function abnormal [Unknown]
  - Infusion related reaction [Unknown]
  - Chills [Unknown]
